FAERS Safety Report 8863710 (Version 1)
Quarter: 2012Q4

REPORT INFORMATION
  Report Type: 
  Country: US (occurrence: US)
  Receive Date: 20121024
  Receipt Date: 20121024
  Transmission Date: 20130627
  Serious: No
  Sender: FDA-Public Use
  Company Number: US-AMGEN-USASP2011063603

PATIENT
  Age: 57 Year
  Sex: Male

DRUGS (4)
  1. ENBREL [Suspect]
     Indication: PSORIASIS
     Dosage: UNK
     Dates: start: 2011
  2. LISINOPRIL [Concomitant]
     Dosage: UNK
  3. METOPROLOL [Concomitant]
     Dosage: UNK
  4. CRESTOR [Concomitant]
     Dosage: UNK

REACTIONS (3)
  - Injection site reaction [Not Recovered/Not Resolved]
  - Injection site urticaria [Not Recovered/Not Resolved]
  - Injection site erythema [Not Recovered/Not Resolved]
